FAERS Safety Report 5288381-0 (Version None)
Quarter: 2007Q1

REPORT INFORMATION
  Report Type: 
  Country: None (occurrence: None)
  Receive Date: 20070116
  Receipt Date: 20060613
  Transmission Date: 20070707
  Serious: Yes (Life-Threatening)
  Sender: FDA-Public Use
  Company Number: FEI2006-0852

PATIENT
  Age: 33 Year
  Sex: Female
  Weight: 90.7194 kg

DRUGS (1)
  1. INTRAUTERINE COPPER CONTRACEPTIVE [Suspect]
     Indication: CONTRACEPTION
     Dosage: INTRA-UTERINE
     Route: 015
     Dates: start: 20050615, end: 20060612

REACTIONS (8)
  - ABORTION [None]
  - ECTOPIC PREGNANCY [None]
  - GENERAL SYMPTOM [None]
  - NAUSEA [None]
  - OVARIAN CYST [None]
  - OVARIAN DISORDER [None]
  - PELVIC PAIN [None]
  - UTERINE PAIN [None]
